FAERS Safety Report 11191708 (Version 1)
Quarter: 2015Q2

REPORT INFORMATION
  Report Type: Spontaneous
  Country: BR (occurrence: None)
  Receive Date: 20150612
  Receipt Date: 20150612
  Transmission Date: 20150821
  Serious: Yes (Other)
  Sender: FDA-Public Use
  Company Number: 8027707

PATIENT
  Age: 50 Year
  Sex: Female
  Weight: 81 kg

DRUGS (3)
  1. SELOZOK (METOPROLOL SUCCINATE) (METOPROLOL SUCCINATE) [Concomitant]
  2. EUTHYROX (LEVOTHYROXINE SODIUM) (LEVOTHYROXINE SODIUM) [Suspect]
     Active Substance: LEVOTHYROXINE SODIUM
     Indication: HYPOTHYROIDISM
  3. NATIFAR (YODOCEFO) (FOLIC ACID, CYANOCOBALAMIN, POTASSIUM IODIDE) [Concomitant]

REACTIONS (7)
  - Blood thyroid stimulating hormone increased [None]
  - Weight increased [None]
  - Hyperhidrosis [None]
  - Fatigue [None]
  - Malaise [None]
  - Feeling hot [None]
  - Drug ineffective [None]

NARRATIVE: CASE EVENT DATE: 201412
